FAERS Safety Report 13686788 (Version 1)
Quarter: 2017Q2

REPORT INFORMATION
  Report Type: Spontaneous
  Country: SG (occurrence: SG)
  Receive Date: 20170623
  Receipt Date: 20170623
  Transmission Date: 20170830
  Serious: Yes (Other)
  Sender: FDA-Public Use
  Company Number: SG-MYLANLABS-2017M1037328

PATIENT

DRUGS (1)
  1. QUETIAPINE. [Suspect]
     Active Substance: QUETIAPINE
     Indication: BIPOLAR I DISORDER
     Dosage: IMMEDIATE RELEASE; AT NIGHT
     Route: 065

REACTIONS (3)
  - Skull fracture [Unknown]
  - Dizziness [Recovered/Resolved]
  - Fall [Recovering/Resolving]
